FAERS Safety Report 6876590-6 (Version None)
Quarter: 2010Q3

REPORT INFORMATION
  Report Type: 
  Country: None (occurrence: None)
  Receive Date: 20100727
  Receipt Date: 20100628
  Transmission Date: 20110219
  Serious: Yes (Hospitalization)
  Sender: FDA-Public Use
  Company Number: JP-BRISTOL-MYERS SQUIBB COMPANY-15188279

PATIENT
  Age: 3 Decade
  Sex: Female

DRUGS (5)
  1. ABILIFY [Suspect]
     Indication: SCHIZOPHRENIA
     Dosage: INCREASED TO 30MG,DAILY DOSE
     Route: 048
  2. OLANZAPINE [Concomitant]
  3. BENZODIAZEPINE [Concomitant]
  4. VALPROATE SODIUM [Concomitant]
  5. BLONANSERIN [Concomitant]

REACTIONS (2)
  - DRUG INEFFECTIVE [None]
  - PSYCHOTIC DISORDER [None]
